FAERS Safety Report 7234324-X (Version None)
Quarter: 2011Q1

REPORT INFORMATION
  Report Type: 
  Country: None (occurrence: None)
  Receive Date: 20110119
  Receipt Date: 20110112
  Transmission Date: 20110831
  Serious: Yes (Other)
  Sender: FDA-Public Use
  Company Number: GB-PFIZER INC-2011008556

PATIENT
  Sex: Male

DRUGS (7)
  1. GLUCOPHAGE [Concomitant]
     Dosage: UNK
  2. TOLBUTAMIDE [Concomitant]
     Dosage: UNK
  3. ZOPICLONE [Concomitant]
     Dosage: 7.5 MG, UNK
  4. LYRICA [Suspect]
     Dosage: 150 MG, 4X/DAY
  5. PROPANOL [Concomitant]
     Dosage: 40 MG, UNK
  6. PRINADOL [Concomitant]
     Dosage: UNK
  7. DIAZEPAM [Concomitant]
     Dosage: 10 MG, UNK

REACTIONS (1)
  - BLOOD GLUCOSE INCREASED [None]
